FAERS Safety Report 8208370-3 (Version None)
Quarter: 2012Q1

REPORT INFORMATION
  Report Type: 
  Country: None (occurrence: None)
  Receive Date: 20120314
  Receipt Date: 20120302
  Transmission Date: 20120608
  Serious: Yes (Life-Threatening, Hospitalization, Other)
  Sender: FDA-Public Use
  Company Number: JP-UCBSA-052586

PATIENT
  Age: 70 Year
  Sex: Male

DRUGS (4)
  1. LAMOTRIGINE [Suspect]
  2. INTERFERON BETA NOS [Concomitant]
  3. KEPPRA [Suspect]
     Route: 048
  4. TEMODAL [Concomitant]

REACTIONS (1)
  - BONE MARROW DISORDER [None]
